FAERS Safety Report 19158180 (Version 1)
Quarter: 2021Q2

REPORT INFORMATION
  Report Type: Spontaneous
  Country: GB (occurrence: GB)
  Receive Date: 20210420
  Receipt Date: 20210420
  Transmission Date: 20210717
  Serious: Yes (Other)
  Sender: FDA-Public Use
  Company Number: GB-MYLANLABS-2021M1022839

PATIENT
  Age: 54 Year
  Sex: Male
  Weight: 106 kg

DRUGS (11)
  1. FUROSEMIDE. [Concomitant]
     Active Substance: FUROSEMIDE
     Indication: ILL-DEFINED DISORDER
     Dosage: UNK, AM (TAKE ONE EACH MORNING)
     Dates: start: 20210113
  2. LACTULOSE. [Concomitant]
     Active Substance: LACTULOSE
     Indication: ILL-DEFINED DISORDER
     Dosage: 15 MILLILITER, TID (TAKE 15MLS THREE TIMES ADAY.)
     Dates: start: 20210113
  3. THIAMINE. [Concomitant]
     Active Substance: THIAMINE
     Indication: ILL-DEFINED DISORDER
     Dosage: UNK UNK, TID (ONE TO BE TAKEN THREE TIMES A DAY)
     Dates: start: 20210113
  4. FAMOTIDINE. [Suspect]
     Active Substance: FAMOTIDINE
     Indication: ILL-DEFINED DISORDER
     Dosage: UNK
     Dates: start: 20210408
  5. LANSOPRAZOLE. [Concomitant]
     Active Substance: LANSOPRAZOLE
     Indication: ILL-DEFINED DISORDER
     Dosage: UNK UNK, QD (TAKE ONE ONCE DAILY)
     Dates: start: 20210113
  6. MIRTAZAPINE. [Concomitant]
     Active Substance: MIRTAZAPINE
     Indication: ILL-DEFINED DISORDER
     Dosage: UNK, PM (1 AT NIGHT)
     Dates: start: 20210113
  7. ATORVASTATIN [Concomitant]
     Active Substance: ATORVASTATIN
     Indication: ILL-DEFINED DISORDER
     Dosage: UNK, QD (TAKE ONE DAILY)
     Dates: start: 20210113
  8. METFORMIN [Concomitant]
     Active Substance: METFORMIN HYDROCHLORIDE
     Indication: ILL-DEFINED DISORDER
     Dosage: UNK UNK, BID (TWO TABLETS TO BE TAKEN TWICE A DAY)
     Dates: start: 20210113
  9. LORATADINE. [Concomitant]
     Active Substance: LORATADINE
     Indication: ILL-DEFINED DISORDER
     Dosage: UNK, QD (ONE TO BE TAKEN DAILY TO RELIEVE SYMPTOMS OF AL...)
     Dates: start: 20210408
  10. PROPRANOLOL [Concomitant]
     Active Substance: PROPRANOLOL HYDROCHLORIDE
     Indication: ILL-DEFINED DISORDER
     Dosage: UNK, QD (ONE TO BE TAKEN EACH DAY)
     Dates: start: 20210113
  11. SPIRONOLACTONE. [Concomitant]
     Active Substance: SPIRONOLACTONE
     Indication: ILL-DEFINED DISORDER
     Dosage: UNK, AM (EVERY MORNING)
     Dates: start: 20210113

REACTIONS (2)
  - Dyspnoea [Recovered/Resolved]
  - Palpitations [Recovered/Resolved]

NARRATIVE: CASE EVENT DATE: 20210413
